APPROVED DRUG PRODUCT: THALLOUS CHLORIDE TL 201
Active Ingredient: THALLOUS CHLORIDE TL-201
Strength: 1mCi/ML
Dosage Form/Route: INJECTABLE;INJECTION
Application: N018150 | Product #001
Applicant: CURIUM US LLC
Approved: Approved Prior to Jan 1, 1982 | RLD: Yes | RS: Yes | Type: RX